FAERS Safety Report 8849238 (Version 1)
Quarter: 2012Q4

REPORT INFORMATION
  Report Type: 
  Country: CH (occurrence: CH)
  Receive Date: 20121019
  Receipt Date: 20121019
  Transmission Date: 20130627
  Serious: Yes (Other)
  Sender: FDA-Public Use
  Company Number: CH-JNJFOC-20121005906

PATIENT
  Age: 35 Year
  Sex: Male
  Weight: 120 kg

DRUGS (4)
  1. XEPLION [Suspect]
     Indication: SCHIZOPHRENIA, PARANOID TYPE
     Route: 030
     Dates: start: 201204, end: 201208
  2. RISPERDAL CONSTA [Suspect]
     Indication: SCHIZOPHRENIA, PARANOID TYPE
     Route: 030
     Dates: start: 201110, end: 201204
  3. DAIVOBET [Concomitant]
     Indication: PSORIASIS
     Route: 003
  4. KETONAZOL [Concomitant]
     Indication: PSORIASIS
     Route: 065

REACTIONS (1)
  - Premature ejaculation [Unknown]
